FAERS Safety Report 6589835-7 (Version None)
Quarter: 2010Q1

REPORT INFORMATION
  Report Type: 
  Country: None (occurrence: None)
  Receive Date: 20100212
  Receipt Date: 20100128
  Transmission Date: 20100710
  Serious: Yes (Other)
  Sender: FDA-Public Use
  Company Number: AMAG201000057

PATIENT
  Age: 66 Year
  Sex: Female
  Weight: 95.2 kg

DRUGS (14)
  1. FERAHEME [Suspect]
     Indication: IRON DEFICIENCY ANAEMIA
     Dosage: 510 MG, SINGLE, INTRAVENOUS
     Route: 042
     Dates: start: 20100127, end: 20100127
  2. AMLODIPINE [Concomitant]
  3. ACCUPRIL [Concomitant]
  4. ASPIRIN [Concomitant]
  5. NIACIN [Concomitant]
  6. FUROSEMIDE (FUROSEMIDE SODIUM) [Concomitant]
  7. HYDROCHLOROTHIAZIDE [Concomitant]
  8. LEVOTHYROXINE SODIUM [Concomitant]
  9. NOVOLOG [Concomitant]
  10. ERGOCALCIFEROL [Concomitant]
  11. OTC IRON TABLET [Concomitant]
  12. VITAMIN A (RETINOL PALMITATE) [Concomitant]
  13. VITAMIN B COMPLEX (NICOTINAMIDE, PYRIDOXINE HYDROCHLORIDE, RIBOFLAVIN, [Concomitant]
  14. VITAMIN E (TOCOPHERYL ACETATE) [Concomitant]

REACTIONS (3)
  - ATRIAL FIBRILLATION [None]
  - HYPOTENSION [None]
  - UNRESPONSIVE TO STIMULI [None]
